FAERS Safety Report 24028656 (Version 2)
Quarter: 2025Q2

REPORT INFORMATION
  Report Type: Spontaneous
  Country: DE (occurrence: DE)
  Receive Date: 20240628
  Receipt Date: 20250603
  Transmission Date: 20250716
  Serious: Yes (Hospitalization, Other)
  Sender: REGENERON
  Company Number: DE-BAYER-2024A070017

PATIENT
  Age: 76 Year
  Sex: Male

DRUGS (2)
  1. EYLEA HD [Suspect]
     Active Substance: AFLIBERCEPT
     Indication: Age-related macular degeneration
     Dates: start: 20240417
  2. EYLEA HD [Suspect]
     Active Substance: AFLIBERCEPT

REACTIONS (5)
  - Blindness [Unknown]
  - Endophthalmitis [Recovered/Resolved]
  - Vitreous disorder [Unknown]
  - Visual acuity reduced [Recovered/Resolved]
  - Eye pain [Recovered/Resolved]

NARRATIVE: CASE EVENT DATE: 20240420
